FAERS Safety Report 19279977 (Version 1)
Quarter: 2021Q2

REPORT INFORMATION
  Report Type: Spontaneous
  Country: US (occurrence: US)
  Receive Date: 20210520
  Receipt Date: 20210520
  Transmission Date: 20210717
  Serious: No
  Sender: FDA-Public Use
  Company Number: US-PFIZER INC-2021211310

PATIENT
  Age: 72 Year
  Sex: Male
  Weight: 82.55 kg

DRUGS (1)
  1. LATANOPROST. [Suspect]
     Active Substance: LATANOPROST
     Indication: GLAUCOMA
     Dosage: 2 DROPS, DAILY (ONE DROP IN EACH EYE)
     Route: 031

REACTIONS (3)
  - Poor quality product administered [Unknown]
  - Intraocular pressure increased [Unknown]
  - Product packaging quantity issue [Unknown]
